FAERS Safety Report 7969938-2 (Version None)
Quarter: 2011Q4

REPORT INFORMATION
  Report Type: 
  Country: None (occurrence: None)
  Receive Date: 20111212
  Receipt Date: 20111206
  Transmission Date: 20120403
  Serious: Yes (Death)
  Sender: FDA-Public Use
  Company Number: US-PFIZER INC-2011265894

PATIENT
  Sex: Male

DRUGS (2)
  1. NEOMYCIN SULFATE [Suspect]
     Dosage: UNK
  2. VFEND [Suspect]
     Indication: CHRONIC LYMPHOCYTIC LEUKAEMIA
     Dosage: 200 MG, 2X/DAY
     Dates: start: 20110906

REACTIONS (3)
  - PNEUMONIA FUNGAL [None]
  - STEM CELL TRANSPLANT [None]
  - GRAFT VERSUS HOST DISEASE [None]
